FAERS Safety Report 5576034-0 (Version None)
Quarter: 2007Q4

REPORT INFORMATION
  Report Type: 
  Country: None (occurrence: None)
  Receive Date: 20071228
  Receipt Date: 20071022
  Transmission Date: 20080405
  Serious: Yes (Other)
  Sender: FDA-Public Use
  Company Number: A0688945A

PATIENT
  Age: 75 Year
  Sex: Male

DRUGS (9)
  1. ADVAIR DISKUS 100/50 [Suspect]
     Indication: CHRONIC OBSTRUCTIVE PULMONARY DISEASE
     Dosage: 1PUFF TWICE PER DAY
     Route: 055
     Dates: start: 20040101, end: 20071018
  2. SPIRIVA [Concomitant]
  3. PREDNISONE [Concomitant]
  4. XOPENEX [Concomitant]
  5. ALBUTEROL [Concomitant]
  6. OXYGEN [Concomitant]
  7. LIPITOR [Concomitant]
  8. CALCIUM CHANNEL BLOCKER [Concomitant]
  9. VITAMIN [Concomitant]

REACTIONS (3)
  - CATARACT [None]
  - GLAUCOMA [None]
  - VISUAL DISTURBANCE [None]
